FAERS Safety Report 11149758 (Version 1)
Quarter: 2015Q2

REPORT INFORMATION
  Report Type: Spontaneous
  Country: BR (occurrence: BR)
  Receive Date: 20150529
  Receipt Date: 20150529
  Transmission Date: 20150821
  Serious: Yes (Other)
  Sender: FDA-Public Use
  Company Number: BR-ELI_LILLY_AND_COMPANY-BR201406001150

PATIENT
  Age: 30 Year
  Sex: Female
  Weight: 75 kg

DRUGS (5)
  1. HUMULIN N [Suspect]
     Active Substance: INSULIN HUMAN
     Indication: GESTATIONAL DIABETES
     Dosage: 3 IU, EACH MORNING
     Route: 058
     Dates: start: 201405, end: 201412
  2. ACIDO FOLICO [Concomitant]
     Active Substance: CYANOCOBALAMIN\FOLIC ACID\PYRIDOXINE HYDROCHLORIDE
     Indication: PRODUCT USED FOR UNKNOWN INDICATION
     Dosage: UNK, UNKNOWN
     Route: 065
  3. HUMULIN N [Suspect]
     Active Substance: INSULIN HUMAN
     Dosage: 4 IU, EACH EVENING
     Route: 058
     Dates: start: 201405, end: 201412
  4. HUMULIN R [Suspect]
     Active Substance: INSULIN HUMAN
     Indication: GESTATIONAL DIABETES
     Dosage: UNK, UNKNOWN
     Route: 058
     Dates: start: 201405, end: 201412
  5. HUMULIN N [Suspect]
     Active Substance: INSULIN HUMAN
     Dosage: 3 IU, QD
     Route: 058
     Dates: start: 201405, end: 201412

REACTIONS (4)
  - Failed induction of labour [Unknown]
  - Blood glucose increased [Recovered/Resolved]
  - Injection site pain [Recovered/Resolved]
  - Exposure during pregnancy [Unknown]

NARRATIVE: CASE EVENT DATE: 20140602
